FAERS Safety Report 17258926 (Version 4)
Quarter: 2020Q1

REPORT INFORMATION
  Report Type: Spontaneous
  Country: AU (occurrence: AU)
  Receive Date: 20200110
  Receipt Date: 20200215
  Transmission Date: 20200409
  Serious: Yes (Life-Threatening, Other)
  Sender: FDA-Public Use
  Company Number: NVSC2020AU003695

PATIENT
  Age: 60 Year
  Sex: Male
  Weight: 81 kg

DRUGS (12)
  1. MAGNESIUM [Concomitant]
     Active Substance: MAGNESIUM
     Indication: PRODUCT USED FOR UNKNOWN INDICATION
     Dosage: 300 MG, BID (BETA BLOCKER, ACE INHIBITOR AND VASODILATOR)
     Route: 065
  2. L-CITRULLINE [Concomitant]
     Active Substance: CITRULLINE
     Indication: PRODUCT USED FOR UNKNOWN INDICATION
     Dosage: 5 MG, BID
     Route: 065
  3. ATORVASTATIN [Suspect]
     Active Substance: ATORVASTATIN
     Indication: MYOCARDIAL INFARCTION
     Dosage: UNK
     Route: 048
     Dates: end: 201910
  4. ENTRESTO [Suspect]
     Active Substance: SACUBITRIL\VALSARTAN
     Indication: CARDIAC DISORDER
     Dosage: 50 MG, BID (24/26 MG)
     Route: 048
     Dates: start: 20191125, end: 20200113
  5. BISOPROLOL [Suspect]
     Active Substance: BISOPROLOL
     Indication: MYOCARDIAL INFARCTION
     Dosage: UNK
     Route: 065
     Dates: end: 201910
  6. VIAGRA [Concomitant]
     Active Substance: SILDENAFIL CITRATE
     Indication: PRODUCT USED FOR UNKNOWN INDICATION
     Dosage: 100 MG (TAKEN ON BOTH SATURDAY AND SUNDAY 4TH AND 6TH JANUARY 2020)
     Route: 065
  7. L-ARGININE [Concomitant]
     Active Substance: ARGININE
     Indication: PRODUCT USED FOR UNKNOWN INDICATION
     Dosage: 3 MG, BID
     Route: 065
  8. FONAT [Concomitant]
     Indication: PRODUCT USED FOR UNKNOWN INDICATION
     Dosage: 70 MG, QW
     Route: 065
  9. HAWTHORN [Concomitant]
     Active Substance: CRATAEGUS LAEVIGATA FRUIT
     Indication: PRODUCT USED FOR UNKNOWN INDICATION
     Dosage: 650 MG, TID (ACE INHIBITOR AND VASODILATOR)
     Route: 065
  10. VITAMIIN C [Concomitant]
     Active Substance: ASCORBIC ACID
     Indication: PRODUCT USED FOR UNKNOWN INDICATION
     Dosage: 1500 MG, QD
     Route: 065
  11. VITAMIN D3 [Concomitant]
     Active Substance: CHOLECALCIFEROL
     Indication: PRODUCT USED FOR UNKNOWN INDICATION
     Dosage: 1000 IU, QD
     Route: 065
  12. ZINC. [Concomitant]
     Active Substance: ZINC
     Indication: PRODUCT USED FOR UNKNOWN INDICATION
     Dosage: 500 MG, QD
     Route: 065

REACTIONS (21)
  - Haemolysis [Unknown]
  - Androgen deficiency [Unknown]
  - Dizziness [Unknown]
  - Hypotension [Unknown]
  - Motor neurone disease [Not Recovered/Not Resolved]
  - Sleep deficit [Unknown]
  - Insomnia [Unknown]
  - Confusional state [Unknown]
  - Sinusitis [Unknown]
  - Product use in unapproved indication [Unknown]
  - Muscle spasms [Unknown]
  - Memory impairment [Unknown]
  - Testicular atrophy [Unknown]
  - Diarrhoea [Unknown]
  - Impaired reasoning [Unknown]
  - Intellectual disability [Not Recovered/Not Resolved]
  - Dyspepsia [Unknown]
  - Cerebral haemorrhage [Recovered/Resolved]
  - Hypogonadism [Unknown]
  - Mood swings [Unknown]
  - Cognitive disorder [Unknown]

NARRATIVE: CASE EVENT DATE: 20191125
